FAERS Safety Report 13114261 (Version 1)
Quarter: 2017Q1

REPORT INFORMATION
  Report Type: Spontaneous
  Country: DE (occurrence: DE)
  Receive Date: 20170113
  Receipt Date: 20170113
  Transmission Date: 20170428
  Serious: Yes (Congenital Anomaly, Other)
  Sender: FDA-Public Use
  Company Number: GXKR2017DE000531

PATIENT

DRUGS (5)
  1. GRIPPEIMPFSTOFF [Concomitant]
     Active Substance: INFLUENZA VIRUS VACCINE
     Indication: IMMUNISATION
     Route: 064
     Dates: start: 20151015, end: 20151015
  2. FOLSAEURE [Concomitant]
     Active Substance: FOLIC ACID
     Indication: PROPHYLAXIS OF NEURAL TUBE DEFECT
     Dosage: 0.4 UG/DAY (BEGIN OF FOLIC ACID UNKNOWN)
     Route: 064
     Dates: start: 20160411, end: 20160411
  3. OPIPRAMOL [Concomitant]
     Active Substance: OPIPRAMOL
     Indication: ANXIETY DISORDER
     Dosage: 100 [MG/D ]/ BEFORE PREGNANCY 3 X 50 MG/D
     Route: 064
     Dates: start: 20150701, end: 20150810
  4. CITALOPRAM [Suspect]
     Active Substance: CITALOPRAM HYDROBROMIDE
     Indication: ANXIETY DISORDER
     Dosage: 20 [MG/D ]
     Route: 064
     Dates: start: 20150813, end: 20160411
  5. ESCITALOPRAM [Concomitant]
     Active Substance: ESCITALOPRAM OXALATE
     Indication: ANXIETY DISORDER
     Dosage: 7.5 [MG/D ]/ DOSAGE: 9.7. - 3.8.: 5 MG; AFTERWARDS 7.5 MG/D.
     Route: 064
     Dates: start: 20150709, end: 20150811

REACTIONS (2)
  - Small for dates baby [Recovered/Resolved]
  - Atrial septal defect [Not Recovered/Not Resolved]

NARRATIVE: CASE EVENT DATE: 20160411
